FAERS Safety Report 9460090 (Version 1)
Quarter: 2013Q3

REPORT INFORMATION
  Report Type: Spontaneous
  Country: US (occurrence: None)
  Receive Date: 20130814
  Receipt Date: 20130814
  Transmission Date: 20140515
  Serious: Yes (Hospitalization)
  Sender: FDA-Public Use
  Company Number: None

PATIENT
  Age: 42 Year
  Sex: Male
  Weight: 84.8 kg

DRUGS (1)
  1. ARTICAINE/EPINEPHRINE [Suspect]
     Dates: start: 20130711, end: 20130711

REACTIONS (8)
  - Paraesthesia [None]
  - Dysgeusia [None]
  - Palpitations [None]
  - Dyspnoea [None]
  - Dizziness [None]
  - Throat tightness [None]
  - Fatigue [None]
  - Panic attack [None]
